FAERS Safety Report 9154729 (Version 1)
Quarter: 2013Q1

REPORT INFORMATION
  Report Type: Spontaneous
  Country: US (occurrence: None)
  Receive Date: 20130204
  Receipt Date: 20130204
  Transmission Date: 20140127
  Serious: Yes (Hospitalization)
  Sender: FDA-Public Use
  Company Number: UCM201301-000003

PATIENT
  Age: 85 Year
  Sex: Female

DRUGS (8)
  1. CLONIDINE HCL [Suspect]
     Indication: HYPERTENSION
     Dosage: 0.1 MG (THRICE DAILY)?
     Dates: start: 2010
  2. COREG (CARVEDILOL) (CARVEDILOL) [Concomitant]
  3. VERAPAMIL [Concomitant]
  4. WATER PILL [Concomitant]
  5. PLAVIX [Concomitant]
  6. HYDROCHLOROTHIAZIDE [Concomitant]
  7. LOSARTAN [Concomitant]
  8. COZAAR [Concomitant]

REACTIONS (13)
  - Hypertension [None]
  - Tooth disorder [None]
  - Discomfort [None]
  - Dry mouth [None]
  - Tongue dry [None]
  - Dry throat [None]
  - Choking [None]
  - Dysphagia [None]
  - Dental caries [None]
  - Anxiety [None]
  - Headache [None]
  - Chest pain [None]
  - Hypophagia [None]
